FAERS Safety Report 10464882 (Version 1)
Quarter: 2014Q3

REPORT INFORMATION
  Report Type: Spontaneous
  Country: DE (occurrence: DE)
  Receive Date: 20140919
  Receipt Date: 20140919
  Transmission Date: 20150326
  Serious: Yes (Death, Other)
  Sender: FDA-Public Use
  Company Number: DE-ACTAVIS-2014-20093

PATIENT
  Age: 41 Year
  Sex: Female

DRUGS (2)
  1. PACLITAXEL (UNKNOWN) [Suspect]
     Active Substance: PACLITAXEL
     Indication: CERVIX CARCINOMA
     Dosage: 80 MG/M2/3 BOUTS
     Route: 041
  2. CISPLATIN (UNKNOWN) [Suspect]
     Active Substance: CISPLATIN
     Indication: CERVIX CARCINOMA
     Dosage: 75MG/M2/3 BOUTS
     Route: 041

REACTIONS (4)
  - Maternal death affecting foetus [Fatal]
  - Foetal death [Fatal]
  - Sudden death [Fatal]
  - Maternal exposure during pregnancy [Fatal]
